FAERS Safety Report 9274014 (Version 1)
Quarter: 2013Q2

REPORT INFORMATION
  Report Type: Spontaneous
  Country: CH (occurrence: CH)
  Receive Date: 20130506
  Receipt Date: 20130506
  Transmission Date: 20140414
  Serious: Yes (Hospitalization, Other)
  Sender: FDA-Public Use
  Company Number: CH-ELI_LILLY_AND_COMPANY-CH201304006830

PATIENT
  Age: 65 Year
  Sex: Female

DRUGS (1)
  1. FORSTEO [Suspect]
     Indication: OSTEOPOROSIS
     Dosage: 20 UG, QD
     Route: 058
     Dates: start: 20120214

REACTIONS (4)
  - Facial bones fracture [Not Recovered/Not Resolved]
  - Fall [Not Recovered/Not Resolved]
  - Neck pain [Not Recovered/Not Resolved]
  - Facial pain [Not Recovered/Not Resolved]
